FAERS Safety Report 5424422-5 (Version None)
Quarter: 2007Q3

REPORT INFORMATION
  Report Type: 
  Country: None (occurrence: None)
  Receive Date: 20070822
  Receipt Date: 20070809
  Transmission Date: 20080115
  Serious: No
  Sender: FDA-Public Use
  Company Number: 2007-162795-NL

PATIENT
  Age: 43 Year
  Sex: Female

DRUGS (1)
  1. MARVELON [Suspect]
     Dosage: DF
     Dates: start: 20051216, end: 20060301

REACTIONS (4)
  - ANAEMIA [None]
  - CONDITION AGGRAVATED [None]
  - DYSMENORRHOEA [None]
  - UTERINE LEIOMYOMA [None]
